FAERS Safety Report 9281297 (Version 3)
Quarter: 2013Q2

REPORT INFORMATION
  Report Type: Report from Study
  Country: GB (occurrence: GB)
  Receive Date: 20130509
  Receipt Date: 20130530
  Transmission Date: 20140414
  Serious: Yes (Hospitalization)
  Sender: FDA-Public Use
  Company Number: GB-PFIZER INC-2013140493

PATIENT
  Age: 37 Year
  Sex: Female
  Weight: 59.2 kg

DRUGS (10)
  1. EPIRUBICIN HCL [Suspect]
     Indication: BREAST CANCER
     Dosage: UNK
     Route: 042
     Dates: start: 20130304
  2. CYCLOPHOSPHAMIDE [Suspect]
     Indication: BREAST CANCER
     Dosage: UNK
     Route: 042
     Dates: start: 20130304
  3. FLUOROURACIL [Suspect]
     Indication: BREAST CANCER
     Dosage: UNK
     Route: 042
     Dates: start: 20130304
  4. CO-CODAMOL [Concomitant]
  5. QVAR [Concomitant]
  6. FLUOXETINE [Concomitant]
  7. DOCUSATE SODIUM [Concomitant]
  8. FERROUS SULFATE [Concomitant]
  9. SALBUTAMOL [Concomitant]
  10. ANUSOL [Concomitant]
     Dosage: UNK
     Dates: start: 20130422

REACTIONS (1)
  - Urinary tract infection [Recovered/Resolved]
